FAERS Safety Report 24790994 (Version 1)
Quarter: 2024Q4

REPORT INFORMATION
  Report Type: Spontaneous
  Country: US (occurrence: US)
  Receive Date: 20241230
  Receipt Date: 20241230
  Transmission Date: 20250115
  Serious: No
  Sender: AMGEN
  Company Number: US-AMGEN-USASP2024254339

PATIENT

DRUGS (3)
  1. ADALIMUMAB [Suspect]
     Active Substance: ADALIMUMAB
     Indication: Sjogren^s syndrome
     Dosage: UNK
     Route: 065
  2. ADALIMUMAB [Suspect]
     Active Substance: ADALIMUMAB
     Indication: Sarcoidosis
  3. ADALIMUMAB [Suspect]
     Active Substance: ADALIMUMAB
     Indication: Parotitis

REACTIONS (3)
  - Therapy partial responder [Unknown]
  - Drug ineffective for unapproved indication [Unknown]
  - Off label use [Unknown]
